FAERS Safety Report 6024663-2 (Version None)
Quarter: 2008Q4

REPORT INFORMATION
  Report Type: 
  Country: None (occurrence: None)
  Receive Date: 20081230
  Receipt Date: 20081230
  Transmission Date: 20090506
  Serious: Yes (Life-Threatening, Disabling)
  Sender: FDA-Public Use
  Company Number: None

PATIENT
  Age: 45 Year
  Sex: Male
  Weight: 102.0593 kg

DRUGS (1)
  1. GADOLINIUM [Suspect]
     Indication: MULTIPLE SCLEROSIS
     Dosage: ONCE 042
     Dates: start: 20030101

REACTIONS (3)
  - BLOOD ARSENIC INCREASED [None]
  - GAIT DISTURBANCE [None]
  - SKIN FIBROSIS [None]
